FAERS Safety Report 10082427 (Version 1)
Quarter: 2014Q2

REPORT INFORMATION
  Report Type: Spontaneous
  Country: US (occurrence: US)
  Receive Date: 20140416
  Receipt Date: 20140416
  Transmission Date: 20141212
  Serious: Yes (Hospitalization)
  Sender: FDA-Public Use
  Company Number: US-JNJFOC-20140401011

PATIENT
  Age: 23 Year
  Sex: Male

DRUGS (2)
  1. CALCIUM CARBONATE [Suspect]
     Indication: HYPERPHOSPHATAEMIA
     Dosage: TAKING 30 TABLETS OF 1000 MG A DAY
     Route: 065
  2. CALCIUM CARBONATE [Suspect]
     Indication: MINERAL SUPPLEMENTATION
     Dosage: TAKING 30 TABLETS OF 1000 MG A DAY
     Route: 065

REACTIONS (1)
  - Calcification metastatic [Unknown]
